FAERS Safety Report 7771355-5 (Version None)
Quarter: 2011Q3

REPORT INFORMATION
  Report Type: 
  Country: None (occurrence: None)
  Receive Date: 20110922
  Receipt Date: 20110912
  Transmission Date: 20111222
  Serious: Yes (Other)
  Sender: FDA-Public Use
  Company Number: US-JNJFOC-20110905242

PATIENT
  Sex: Female
  Weight: 98.88 kg

DRUGS (5)
  1. ANTIHISTAMINES [Concomitant]
     Indication: PREMEDICATION
  2. INFLIXIMAB, RECOMBINANT [Suspect]
     Route: 042
     Dates: start: 20010220
  3. ACETAMINOPHEN [Concomitant]
     Indication: PREMEDICATION
  4. MESALAMINE [Concomitant]
     Indication: CROHN'S DISEASE
  5. INFLIXIMAB, RECOMBINANT [Suspect]
     Indication: CROHN'S DISEASE
     Route: 042

REACTIONS (1)
  - INTESTINAL STENOSIS [None]
